FAERS Safety Report 8210180-8 (Version None)
Quarter: 2012Q1

REPORT INFORMATION
  Report Type: 
  Country: None (occurrence: None)
  Receive Date: 20120314
  Receipt Date: 20120208
  Transmission Date: 20120608
  Serious: No
  Sender: FDA-Public Use
  Company Number: US-ASTRAZENECA-2012SE08646

PATIENT
  Sex: Female

DRUGS (2)
  1. TOPROL-XL [Suspect]
     Indication: BLOOD PRESSURE ABNORMAL
     Route: 048
  2. GLUTEN [Concomitant]

REACTIONS (5)
  - AUTOIMMUNE DISORDER [None]
  - URTICARIA [None]
  - MALAISE [None]
  - PSORIASIS [None]
  - DIARRHOEA [None]
